FAERS Safety Report 17364848 (Version 1)
Quarter: 2020Q1

REPORT INFORMATION
  Report Type: Spontaneous
  Country: ES (occurrence: ES)
  Receive Date: 20200204
  Receipt Date: 20200204
  Transmission Date: 20200409
  Serious: Yes (Death, Other)
  Sender: FDA-Public Use
  Company Number: ES-AMGEN-ESPSP2020017078

PATIENT

DRUGS (4)
  1. MYCOPHENOLATE MOFETIL. [Concomitant]
     Active Substance: MYCOPHENOLATE MOFETIL
  2. AZATHIOPRINE. [Concomitant]
     Active Substance: AZATHIOPRINE
  3. IRON [Concomitant]
     Active Substance: IRON
  4. DARBEPOETIN ALFA [Suspect]
     Active Substance: DARBEPOETIN ALFA
     Indication: NEPHROGENIC ANAEMIA
     Dosage: UNK
     Route: 065

REACTIONS (7)
  - Haemoglobin decreased [Unknown]
  - Renal impairment [Unknown]
  - Bone metabolism disorder [Unknown]
  - Transplant failure [Fatal]
  - Death [Fatal]
  - Drug resistance [Fatal]
  - Proteinuria [Unknown]
